FAERS Safety Report 4722860-7 (Version None)
Quarter: 2005Q3

REPORT INFORMATION
  Report Type: 
  Country: None (occurrence: None)
  Receive Date: 20050722
  Receipt Date: 20050718
  Transmission Date: 20060218
  Serious: Yes (Hospitalization)
  Sender: FDA-Public Use
  Company Number: FR-GLAXOSMITHKLINE-B0388273A

PATIENT
  Age: 11 Month
  Sex: Male
  Weight: 9.6 kg

DRUGS (6)
  1. ZOVIRAX [Suspect]
     Indication: VARICELLA
     Dosage: 100MG THREE TIMES PER DAY
     Route: 042
     Dates: start: 20050601
  2. ASPEGIC 325 [Suspect]
     Route: 048
     Dates: start: 20050525, end: 20050529
  3. DOLIPRANE [Suspect]
     Route: 048
     Dates: start: 20050530
  4. ADVIL [Suspect]
     Dosage: 1UNIT AT NIGHT
     Route: 048
     Dates: start: 20050528, end: 20050529
  5. POLARAMINE [Suspect]
     Indication: PRURITUS
     Route: 048
     Dates: start: 20050530, end: 20050601
  6. ZOVIRAX [Concomitant]
     Route: 048
     Dates: start: 20050530, end: 20050601

REACTIONS (9)
  - BACTERIAL INFECTION [None]
  - CELLULITIS [None]
  - COUGH [None]
  - INDURATION [None]
  - ORAL SOFT TISSUE DISORDER [None]
  - PAIN [None]
  - SCAB [None]
  - SKIN DISORDER [None]
  - SKIN NECROSIS [None]
